FAERS Safety Report 11115278 (Version 1)
Quarter: 2015Q2

REPORT INFORMATION
  Report Type: Spontaneous
  Country: US (occurrence: None)
  Receive Date: 20150513
  Receipt Date: 20150513
  Transmission Date: 20150821
  Serious: Yes (Hospitalization, Other)
  Sender: FDA-Public Use
  Company Number: 001916755A

PATIENT
  Age: 42 Year
  Sex: Female

DRUGS (2)
  1. MEANINGFUL BEAUTY DAY CREAM SPF 20 [Suspect]
     Active Substance: AVOBENZONE\OCTINOXATE\OCTISALATE\OXYBENZONE
     Dosage: TWICE DAILY DERMAL
     Dates: start: 20150302, end: 20150308
  2. MEANINGFUL BEAUTY CINDY CRAWFORD SKIN BRIGHTENING DECOLLETE AND NECK TREATMENT SPF 15 [Suspect]
     Active Substance: AVOBENZONE\OCTINOXATE\OCTISALATE\OXYBENZONE
     Dosage: TWICE DAILY DERMAL
     Dates: start: 20150302, end: 20150308

REACTIONS (3)
  - Swelling face [None]
  - Food allergy [None]
  - Dyspnoea [None]

NARRATIVE: CASE EVENT DATE: 20150308
